FAERS Safety Report 6575209-1 (Version None)
Quarter: 2010Q1

REPORT INFORMATION
  Report Type: 
  Country: None (occurrence: None)
  Receive Date: 20100209
  Receipt Date: 20100127
  Transmission Date: 20100710
  Serious: Yes (Hospitalization)
  Sender: FDA-Public Use
  Company Number: NL-MEDIMMUNE-MEDI-0010387

PATIENT
  Sex: Female
  Weight: 5.98 kg

DRUGS (2)
  1. SYNAGIS [Suspect]
     Route: 030
     Dates: start: 20091124, end: 20100119
  2. FERROUS GLUCONATE [Concomitant]
     Dates: end: 20100101

REACTIONS (3)
  - HYPOPHAGIA [None]
  - NASOPHARYNGITIS [None]
  - VIRAL INFECTION [None]
